FAERS Safety Report 9102855 (Version 2)
Quarter: 2013Q1

REPORT INFORMATION
  Report Type: Report from Study
  Country: CA (occurrence: CA)
  Receive Date: 20130218
  Receipt Date: 20130220
  Transmission Date: 20140127
  Serious: Yes (Hospitalization)
  Sender: FDA-Public Use
  Company Number: CA-ROCHE-1191375

PATIENT
  Age: 69 Year
  Sex: Female
  Weight: 66 kg

DRUGS (9)
  1. ACTEMRA [Suspect]
     Indication: RHEUMATOID ARTHRITIS
     Route: 042
     Dates: start: 20101115
  2. ACTEMRA [Suspect]
     Route: 042
     Dates: start: 20110119
  3. ACTEMRA [Suspect]
     Route: 042
     Dates: start: 20110323
  4. METHOTREXATE [Concomitant]
     Route: 058
  5. FOSAVANCE [Concomitant]
  6. LEUCOVORIN [Concomitant]
     Route: 048
  7. NAPROSYN [Concomitant]
     Route: 065
  8. TYLENOL #3 (CANADA) [Concomitant]
     Route: 065
  9. TYLENOL EXTRA STRENGTH [Concomitant]

REACTIONS (4)
  - Rib fracture [Recovering/Resolving]
  - Fall [Recovering/Resolving]
  - Haematoma [Recovering/Resolving]
  - Swelling [Recovering/Resolving]
